FAERS Safety Report 18960493 (Version 1)
Quarter: 2021Q1

REPORT INFORMATION
  Report Type: Other
  Country: CA (occurrence: CA)
  Receive Date: 20210303
  Receipt Date: 20210303
  Transmission Date: 20210420
  Serious: Yes (Other)
  Sender: FDA-Public Use
  Company Number: CA-APOTEX-2021AP003880

PATIENT
  Sex: Female
  Weight: 3 kg

DRUGS (1)
  1. ZOLEDRONIC ACID [Suspect]
     Active Substance: ZOLEDRONIC ACID
     Indication: PATHOLOGICAL FRACTURE
     Dosage: UNK
     Route: 042

REACTIONS (5)
  - Product use in unapproved indication [Unknown]
  - Tibia fracture [Unknown]
  - Fibula fracture [Unknown]
  - Off label use [Unknown]
  - Foot fracture [Unknown]
